FAERS Safety Report 6142806-7 (Version None)
Quarter: 2009Q2

REPORT INFORMATION
  Report Type: 
  Country: None (occurrence: None)
  Receive Date: 20090403
  Receipt Date: 20090331
  Transmission Date: 20091009
  Serious: No
  Sender: FDA-Public Use
  Company Number: US-B.I. PHARMACEUTICALS,INC./RIDGEFIELD-2009-BP-04094BP

PATIENT
  Sex: Female

DRUGS (5)
  1. SPIRIVA [Suspect]
     Dates: start: 20080101
  2. CARVEDILOL [Suspect]
     Indication: CARDIOMEGALY
  3. LISINOPRIL [Concomitant]
     Indication: CARDIOMEGALY
  4. POTASSIUM CHLORIDE [Concomitant]
  5. DIURETIC [Concomitant]

REACTIONS (1)
  - DYSPNOEA [None]
